FAERS Safety Report 6267492-7 (Version None)
Quarter: 2009Q3

REPORT INFORMATION
  Report Type: 
  Country: None (occurrence: None)
  Receive Date: 20090714
  Receipt Date: 20090707
  Transmission Date: 20100115
  Serious: Yes (Death)
  Sender: FDA-Public Use
  Company Number: BE-MERCK-0907BEL00004

PATIENT
  Age: 56 Year
  Sex: Female
  Weight: 50 kg

DRUGS (5)
  1. CANCIDAS [Suspect]
     Route: 041
     Dates: start: 20080531, end: 20080618
  2. POSACONAZOLE [Concomitant]
     Indication: PYREXIA
     Route: 048
     Dates: start: 20081015, end: 20081105
  3. FLUCONAZOLE [Concomitant]
     Indication: PYREXIA
     Route: 048
     Dates: start: 20081103, end: 20081104
  4. CEFEPIME [Concomitant]
     Indication: PYREXIA
     Route: 051
  5. CIPROFLOXACIN [Concomitant]
     Indication: PYREXIA
     Route: 065
     Dates: start: 20080614, end: 20081102

REACTIONS (1)
  - HAEMORRHAGE [None]
